FAERS Safety Report 4393706-4 (Version None)
Quarter: 2004Q3

REPORT INFORMATION
  Report Type: 
  Country: None (occurrence: None)
  Receive Date: 20040709
  Receipt Date: 20040603
  Transmission Date: 20050211
  Serious: Yes (Life-Threatening, Hospitalization, Disabling, Other)
  Sender: FDA-Public Use
  Company Number: US-GLAXOSMITHKLINE-A0513288A

PATIENT
  Age: 17 Year
  Sex: Female
  Weight: 110.9 kg

DRUGS (2)
  1. VALTREX [Suspect]
     Dosage: 1000MG TWICE PER DAY
     Route: 048
     Dates: start: 20040303
  2. NO CONCURRENT MEDICATION [Concomitant]

REACTIONS (2)
  - GLAUCOMA [None]
  - RETINAL VEIN OCCLUSION [None]
